FAERS Safety Report 8117279-5 (Version None)
Quarter: 2012Q1

REPORT INFORMATION
  Report Type: 
  Country: None (occurrence: None)
  Receive Date: 20120206
  Receipt Date: 20120118
  Transmission Date: 20120608
  Serious: Yes (Hospitalization)
  Sender: FDA-Public Use
  Company Number: FR-PFIZER INC-K201100165

PATIENT
  Age: 54 Year
  Sex: Male

DRUGS (12)
  1. VICTOZA [Suspect]
     Indication: TYPE 2 DIABETES MELLITUS
     Dosage: 1.8 MG, 1X/DAY
     Route: 058
     Dates: start: 20110118
  2. VICTOZA [Suspect]
     Dosage: 1.2 MG, 1X/DAY
     Route: 058
     Dates: start: 20100515, end: 20110117
  3. PIOGLITAZONE [Suspect]
     Indication: TYPE 2 DIABETES MELLITUS
     Dosage: 15 MG, 1X/DAY
     Route: 048
  4. BISOPROLOL FUMARATE [Suspect]
     Indication: HYPERTENSION
     Dosage: 20 MG, 1X/DAY
     Route: 048
  5. ATORVASTATIN [Concomitant]
     Dosage: 40 MG, 2X/DAY
  6. RAMIPRIL [Suspect]
     Dosage: 10 MG, 1X/DAY
     Route: 048
  7. TRIMETAZIDINE HYDROCHLORIDE [Suspect]
     Indication: HYPERTENSION
     Dosage: 35 MG, 2X/DAY
     Route: 048
  8. IKOREL [Concomitant]
     Dosage: 20 MG, 2X/DAY
  9. ASPIRIN [Concomitant]
     Dosage: 160 MG, 1X/DAY
  10. TRAMADOL HCL [Suspect]
     Indication: PAIN
     Dosage: 10 MG, 2X/DAY
     Route: 048
  11. AMLODIPINE BESYLATE [Suspect]
     Dosage: 5 MG, 2X/DAY
     Route: 048
  12. GLUCOPHAGE [Suspect]
     Indication: TYPE 2 DIABETES MELLITUS
     Dosage: 1000 MG, 3X/DAY
     Route: 048

REACTIONS (6)
  - VISUAL IMPAIRMENT [None]
  - ASTHENIA [None]
  - SUPRAVENTRICULAR TACHYCARDIA [None]
  - HYPOTONIA [None]
  - FALL [None]
  - MALAISE [None]
